FAERS Safety Report 6345471-9 (Version None)
Quarter: 2009Q3

REPORT INFORMATION
  Report Type: 
  Country: None (occurrence: None)
  Receive Date: 20090909
  Receipt Date: 20090827
  Transmission Date: 20100115
  Serious: Yes (Hospitalization)
  Sender: FDA-Public Use
  Company Number: FR-CELGENEUS-056-C5013-09050447

PATIENT
  Sex: Female
  Weight: 74 kg

DRUGS (9)
  1. CC-5013 [Suspect]
     Indication: MULTIPLE MYELOMA
     Route: 048
     Dates: start: 20090406
  2. CC-5013 [Suspect]
     Route: 048
     Dates: start: 20090430
  3. DEXAMETHASONE [Suspect]
     Indication: MULTIPLE MYELOMA
     Route: 065
     Dates: start: 20090406
  4. DEXAMETHASONE [Suspect]
     Route: 065
     Dates: start: 20090430
  5. DEXAMETHASONE [Suspect]
     Route: 065
     Dates: start: 20090824
  6. B BLOQUANT [Concomitant]
     Indication: HYPERTENSION
     Route: 065
  7. ACEBUTOLOL [Concomitant]
     Indication: CARDIAC DISORDER
     Route: 048
     Dates: start: 20090418
  8. INNOHEP [Concomitant]
     Indication: THROMBOSIS PROPHYLAXIS
     Route: 058
     Dates: start: 20090406
  9. AERIUS [Concomitant]
     Route: 048
     Dates: start: 20090410

REACTIONS (1)
  - PYELONEPHRITIS [None]
